FAERS Safety Report 5101121-0 (Version None)
Quarter: 2006Q3

REPORT INFORMATION
  Report Type: 
  Country: None (occurrence: None)
  Receive Date: 20060906
  Receipt Date: 20060829
  Transmission Date: 20061208
  Serious: Yes (Disabling)
  Sender: FDA-Public Use
  Company Number: 2006-147161-NL

PATIENT
  Age: 17 Year
  Sex: Female

DRUGS (2)
  1. ETONOGESTREL [Suspect]
     Indication: CONTRACEPTION
     Dosage: DF, SUBCUTANEOUS
     Route: 058
     Dates: start: 20060330, end: 20060401
  2. MEDROXYPROGESTERONE ACETATE [Concomitant]

REACTIONS (4)
  - LIVEDO RETICULARIS [None]
  - MALAISE [None]
  - OEDEMA PERIPHERAL [None]
  - VOMITING [None]
